FAERS Safety Report 8921761 (Version 2)
Quarter: 2012Q4

REPORT INFORMATION
  Report Type: 
  Country: US (occurrence: US)
  Receive Date: 20121122
  Receipt Date: 20121205
  Transmission Date: 20130627
  Serious: Yes (Other)
  Sender: FDA-Public Use
  Company Number: US-009507513-1211USA006811

PATIENT
  Sex: Male

DRUGS (3)
  1. PEG-INTRON [Suspect]
     Indication: HEPATITIS C
     Dosage: UNK
     Route: 058
     Dates: start: 20051014, end: 20051214
  2. REBETOL [Suspect]
     Indication: HEPATITIS C
     Dosage: UNK
     Route: 048
     Dates: start: 20051014, end: 20051214
  3. METHADONE HYDROCHLORIDE [Concomitant]

REACTIONS (7)
  - Urine analysis abnormal [Unknown]
  - Drug intolerance [Unknown]
  - Suicidal ideation [Unknown]
  - Dyspnoea [Unknown]
  - Dysphagia [Unknown]
  - Movement disorder [Unknown]
  - Pain [Unknown]
